FAERS Safety Report 8061654-4 (Version None)
Quarter: 2012Q1

REPORT INFORMATION
  Report Type: 
  Country: None (occurrence: None)
  Receive Date: 20120123
  Receipt Date: 20120113
  Transmission Date: 20120608
  Serious: Yes (Congenital Anomaly, Other)
  Sender: FDA-Public Use
  Company Number: FR-BRISTOL-MYERS SQUIBB COMPANY-16305708

PATIENT

DRUGS (1)
  1. REYATAZ [Suspect]
     Route: 064

REACTIONS (1)
  - CONGENITAL GENITAL MALFORMATION [None]
